FAERS Safety Report 25258747 (Version 1)
Quarter: 2025Q2

REPORT INFORMATION
  Report Type: Spontaneous
  Country: US (occurrence: US)
  Receive Date: 20250501
  Receipt Date: 20250501
  Transmission Date: 20250717
  Serious: Yes (Other)
  Sender: XGEN PHARMACEUTICALS DJB, INC.
  Company Number: US-XGen Pharmaceuticals DJB, Inc.-2175949

PATIENT
  Age: 40 Year
  Sex: Female

DRUGS (2)
  1. CYCLOPHOSPHAMIDE [Suspect]
     Active Substance: CYCLOPHOSPHAMIDE
     Indication: Breast cancer
     Dates: start: 20250217
  2. DOCETAXEL [Concomitant]
     Active Substance: DOCETAXEL
     Dates: start: 20250217

REACTIONS (1)
  - Liver function test abnormal [Unknown]

NARRATIVE: CASE EVENT DATE: 20250217
